FAERS Safety Report 24131964 (Version 1)
Quarter: 2024Q3

REPORT INFORMATION
  Report Type: Spontaneous
  Country: US (occurrence: US)
  Receive Date: 20240724
  Receipt Date: 20240724
  Transmission Date: 20241017
  Serious: No
  Sender: PFIZER
  Company Number: US-PFIZER INC-202400220842

PATIENT
  Age: 59 Year
  Sex: Male

DRUGS (1)
  1. ADCETRIS [Suspect]
     Active Substance: BRENTUXIMAB VEDOTIN
     Dosage: 180 MG EVERY 21 DAYS, GIVEN VIA IV
     Route: 042
     Dates: end: 20240318

REACTIONS (1)
  - Neoplasm progression [Unknown]
